FAERS Safety Report 7833171-5 (Version None)
Quarter: 2011Q4

REPORT INFORMATION
  Report Type: 
  Country: None (occurrence: None)
  Receive Date: 20111024
  Receipt Date: 20111017
  Transmission Date: 20120403
  Serious: Yes (Hospitalization)
  Sender: FDA-Public Use
  Company Number: DE-JNJFOC-20111002741

PATIENT
  Sex: Male
  Weight: 72 kg

DRUGS (3)
  1. PALIPERIDONE [Suspect]
     Indication: SCHIZOPHRENIA
     Route: 030
  2. ABILIFY [Concomitant]
     Indication: SCHIZOPHRENIA
     Route: 048
     Dates: start: 20110818
  3. PALIPERIDONE [Suspect]
     Route: 030
     Dates: start: 20110909

REACTIONS (2)
  - FOOT FRACTURE [None]
  - ABNORMAL BEHAVIOUR [None]
